FAERS Safety Report 12512129 (Version 3)
Quarter: 2020Q3

REPORT INFORMATION
  Report Type: Spontaneous
  Country: US (occurrence: US)
  Receive Date: 20160630
  Receipt Date: 20200928
  Transmission Date: 20201102
  Serious: Yes (Hospitalization)
  Sender: FDA-Public Use
  Company Number: US-JNJFOC-20160509643

PATIENT
  Age: 44 Year
  Sex: Female

DRUGS (2)
  1. XARELTO [Suspect]
     Active Substance: RIVAROXABAN
     Indication: PULMONARY EMBOLISM
     Dosage: THE PATIENT WAS TREATED WITH RIVAROXABAN IN VARYING DOSES OF 20MG AND 15 MG.
     Route: 048
     Dates: start: 20140805, end: 20141203
  2. XARELTO [Suspect]
     Active Substance: RIVAROXABAN
     Indication: DEEP VEIN THROMBOSIS

REACTIONS (2)
  - Haemothorax [Recovering/Resolving]
  - Iron deficiency anaemia [Unknown]

NARRATIVE: CASE EVENT DATE: 20140826
